FAERS Safety Report 15575305 (Version 1)
Quarter: 2018Q4

REPORT INFORMATION
  Report Type: Spontaneous
  Country: US (occurrence: US)
  Receive Date: 20181101
  Receipt Date: 20181101
  Transmission Date: 20190205
  Serious: Yes (Death)
  Sender: FDA-Public Use
  Company Number: None

PATIENT
  Sex: Female

DRUGS (4)
  1. TEMOZOLOMIDE. [Suspect]
     Active Substance: TEMOZOLOMIDE
     Indication: BRAIN NEOPLASM MALIGNANT
     Route: 048
     Dates: start: 20180905
  2. MORPHINE SUL [Concomitant]
     Active Substance: MORPHINE SULFATE
  3. LORAZEPAM. [Concomitant]
     Active Substance: LORAZEPAM
  4. HYOSCAMINE [Concomitant]

REACTIONS (1)
  - Death [None]
